FAERS Safety Report 9418586 (Version 3)
Quarter: 2014Q1

REPORT INFORMATION
  Report Type: Report from Study
  Country: BR (occurrence: BR)
  Receive Date: 20130725
  Receipt Date: 20140112
  Transmission Date: 20141002
  Serious: Yes (Hospitalization)
  Sender: FDA-Public Use
  Company Number: BR-ROCHE-1179410

PATIENT
  Age: 54 Year
  Sex: Male
  Weight: 60.9 kg

DRUGS (4)
  1. PEG-INTERFERON ALFA 2A [Suspect]
     Indication: CHRONIC HEPATITIS C
     Route: 058
     Dates: start: 20121031, end: 20130109
  2. RIBAVIRIN [Suspect]
     Indication: CHRONIC HEPATITIS C
     Route: 048
     Dates: start: 20121031, end: 20130108
  3. BLINDED TMC435 [Suspect]
     Indication: CHRONIC HEPATITIS C
     Route: 048
     Dates: start: 20121031, end: 20130108
  4. BLINDED TELAPREVIR [Suspect]
     Indication: CHRONIC HEPATITIS C
     Route: 065
     Dates: start: 20121031, end: 20130108

REACTIONS (1)
  - Rash [Recovered/Resolved]
